FAERS Safety Report 7938569-2 (Version None)
Quarter: 2011Q4

REPORT INFORMATION
  Report Type: 
  Country: None (occurrence: None)
  Receive Date: 20111123
  Receipt Date: 20111117
  Transmission Date: 20120403
  Serious: Yes (Hospitalization)
  Sender: FDA-Public Use
  Company Number: US-AMGEN-USASP2011060983

PATIENT

DRUGS (1)
  1. ENBREL [Suspect]
     Dosage: UNK

REACTIONS (1)
  - HOSPITALISATION [None]
